FAERS Safety Report 19796659 (Version 1)
Quarter: 2021Q3

REPORT INFORMATION
  Report Type: Spontaneous
  Country: US (occurrence: US)
  Receive Date: 20210907
  Receipt Date: 20210907
  Transmission Date: 20211014
  Serious: No
  Sender: FDA-Public Use
  Company Number: US-GILEAD-2021-0547299

PATIENT
  Age: 53 Year
  Sex: Female

DRUGS (20)
  1. ALBUTEROL [SALBUTAMOL] [Concomitant]
     Active Substance: ALBUTEROL
  2. NAPROSYN [Concomitant]
     Active Substance: NAPROXEN
  3. SYNTHROID [Concomitant]
     Active Substance: LEVOTHYROXINE SODIUM
  4. NEURONTIN [Concomitant]
     Active Substance: GABAPENTIN
  5. FLUVIRIN A [Concomitant]
  6. KEFLEX [Concomitant]
     Active Substance: CEPHALEXIN
  7. MOBIC [Concomitant]
     Active Substance: MELOXICAM
  8. LOMOTIL [LOPERAMIDE HYDROCHLORIDE] [Concomitant]
     Active Substance: LOPERAMIDE HYDROCHLORIDE
  9. PREMARIN [Concomitant]
     Active Substance: ESTROGENS, CONJUGATED
  10. DESCOVY [Concomitant]
     Active Substance: EMTRICITABINE\TENOFOVIR ALAFENAMIDE FUMARATE
  11. VIBRAMYCIN [DOXYCYCLINE CALCIUM] [Concomitant]
  12. CELEXA [CELECOXIB] [Concomitant]
     Active Substance: CELECOXIB
  13. SOFOSBUVIR;VELPATASVIR [Suspect]
     Active Substance: SOFOSBUVIR\VELPATASVIR
     Indication: CHRONIC HEPATITIS C
     Dosage: 1 DOSAGE FORM, QD
     Route: 048
  14. PROVENTIL [Concomitant]
     Active Substance: ALBUTEROL
  15. FIORICET [Concomitant]
     Active Substance: ACETAMINOPHEN\BUTALBITAL\CAFFEINE
  16. SPIRIVA RESPIMAT [Concomitant]
     Active Substance: TIOTROPIUM BROMIDE
  17. SYMBICORT [Concomitant]
     Active Substance: BUDESONIDE\FORMOTEROL FUMARATE DIHYDRATE
  18. PHENERGAN [Concomitant]
     Active Substance: PROMETHAZINE HYDROCHLORIDE
  19. DILANTIN [Concomitant]
     Active Substance: PHENYTOIN
  20. ROBAXIN?750 [Concomitant]
     Active Substance: METHOCARBAMOL

REACTIONS (1)
  - Intentional dose omission [Unknown]
